FAERS Safety Report 8523161-1 (Version None)
Quarter: 2012Q3

REPORT INFORMATION
  Report Type: 
  Country: None (occurrence: None)
  Receive Date: 20120709
  Receipt Date: 20120627
  Transmission Date: 20120928
  Serious: Yes (Hospitalization, Other)
  Sender: FDA-Public Use
  Company Number: 2012P1046336

PATIENT
  Age: 83 Year
  Sex: Male
  Weight: 82.5547 kg

DRUGS (3)
  1. PREDNISONE [Suspect]
     Indication: PROSTATE CANCER
     Dosage: 5 MG;BID;PO
     Route: 048
     Dates: start: 20120517
  2. TAXOTERE [Concomitant]
  3. ^TOO MANY^ UNSPECIFIED CONCOMITANT MEDICATIONS [Concomitant]

REACTIONS (7)
  - MUSCLE SPASMS [None]
  - PAIN [None]
  - VOMITING [None]
  - NAUSEA [None]
  - WHITE BLOOD CELL COUNT DECREASED [None]
  - FATIGUE [None]
  - DIARRHOEA [None]
